FAERS Safety Report 22319702 (Version 1)
Quarter: 2023Q2

REPORT INFORMATION
  Report Type: Spontaneous
  Country: ES (occurrence: ES)
  Receive Date: 20230515
  Receipt Date: 20230515
  Transmission Date: 20230721
  Serious: Yes (Other)
  Sender: FDA-Public Use
  Company Number: None

PATIENT
  Age: 36 Year
  Sex: Female
  Weight: 48 kg

DRUGS (1)
  1. LEVONORGESTREL [Suspect]
     Active Substance: LEVONORGESTREL
     Indication: Post coital contraception
     Dosage: 1 DOSIS
     Route: 048
     Dates: start: 20211024, end: 20211024

REACTIONS (1)
  - Vulvovaginal candidiasis [Not Recovered/Not Resolved]

NARRATIVE: CASE EVENT DATE: 20211026
